FAERS Safety Report 7597079-5 (Version None)
Quarter: 2011Q3

REPORT INFORMATION
  Report Type: 
  Country: None (occurrence: None)
  Receive Date: 20110708
  Receipt Date: 20110630
  Transmission Date: 20111222
  Serious: Yes (Hospitalization)
  Sender: FDA-Public Use
  Company Number: US-ALEXION-A201100540

PATIENT
  Sex: Male

DRUGS (1)
  1. SOLIRIS [Suspect]
     Indication: PAROXYSMAL NOCTURNAL HAEMOGLOBINURIA
     Dosage: 900 MG Q12DAYS
     Route: 042

REACTIONS (5)
  - BLOOD IRON INCREASED [None]
  - TRANSFUSION REACTION [None]
  - PLATELET COUNT DECREASED [None]
  - ANAEMIA [None]
  - HEADACHE [None]
